FAERS Safety Report 9190004 (Version 1)
Quarter: 2013Q1

REPORT INFORMATION
  Report Type: Spontaneous
  Country: US (occurrence: None)
  Receive Date: 20130322
  Receipt Date: 20130322
  Transmission Date: 20140127
  Serious: Yes (Other)
  Sender: FDA-Public Use
  Company Number: None

PATIENT
  Age: 36 None
  Sex: Female

DRUGS (1)
  1. ISONIAZID [Suspect]
     Indication: PROPHYLAXIS
     Route: 048

REACTIONS (6)
  - Memory impairment [None]
  - Mental impairment [None]
  - Somnolence [None]
  - Sleep disorder [None]
  - Impatience [None]
  - Unevaluable event [None]
